FAERS Safety Report 9782638 (Version 2)
Quarter: 2014Q2

REPORT INFORMATION
  Report Type: Spontaneous
  Country: FR (occurrence: FR)
  Receive Date: 20131226
  Receipt Date: 20140630
  Transmission Date: 20141212
  Serious: Yes (Hospitalization)
  Sender: FDA-Public Use
  Company Number: PHHY2013FR151125

PATIENT
  Sex: Female

DRUGS (2)
  1. ZOMETA [Suspect]
     Indication: METASTASES TO BONE
     Dosage: 2.5 MG, ONCE A MONTH
     Route: 042
     Dates: start: 201203, end: 201310
  2. ARIMIDEX [Concomitant]
     Dosage: UNK UKN, UNK
     Dates: start: 201106

REACTIONS (1)
  - Osteonecrosis of jaw [Not Recovered/Not Resolved]
